FAERS Safety Report 5025930-1 (Version None)
Quarter: 2006Q2

REPORT INFORMATION
  Report Type: 
  Country: None (occurrence: None)
  Receive Date: 20060614
  Receipt Date: 20060512
  Transmission Date: 20061013
  Serious: Yes (Other)
  Sender: FDA-Public Use
  Company Number: BE-GLAXOSMITHKLINE-B0424209A

PATIENT
  Age: 41 Year
  Sex: Male
  Weight: 69 kg

DRUGS (3)
  1. ZEFFIX [Suspect]
     Indication: HEPATITIS B E ANTIGEN NEGATIVE
     Dosage: 100MG PER DAY
     Route: 048
     Dates: start: 20050517
  2. GAVISCON [Concomitant]
     Dosage: 5ML IN THE MORNING
     Route: 048
  3. ACETAMINOPHEN [Concomitant]
     Indication: HEADACHE
     Dosage: 500MG IN THE MORNING
     Route: 048

REACTIONS (2)
  - MISCARRIAGE OF PARTNER [None]
  - PREGNANCY OF PARTNER [None]
